FAERS Safety Report 19029373 (Version 1)
Quarter: 2021Q1

REPORT INFORMATION
  Report Type: Spontaneous
  Country: CN (occurrence: CN)
  Receive Date: 20210318
  Receipt Date: 20210318
  Transmission Date: 20210420
  Serious: Yes (Other)
  Sender: FDA-Public Use
  Company Number: CN-PURDUE-USA-2021-0234846

PATIENT
  Age: 85 Year
  Sex: Female
  Weight: 55 kg

DRUGS (1)
  1. OXYCONTIN [Suspect]
     Active Substance: OXYCODONE HYDROCHLORIDE
     Indication: CANCER PAIN
     Dosage: 90 MG, DAILY (50 MG IN THE MORNING AND 40 MG IN THE EVENING)
     Route: 048
     Dates: start: 20191118, end: 20191120

REACTIONS (4)
  - Somnolence [Recovering/Resolving]
  - Hallucination [Recovering/Resolving]
  - Delirium [Recovering/Resolving]
  - Terminal insomnia [Recovering/Resolving]

NARRATIVE: CASE EVENT DATE: 20191120
